FAERS Safety Report 9854141 (Version 3)
Quarter: 2014Q1

REPORT INFORMATION
  Report Type: Report from Study
  Country: FR (occurrence: FR)
  Receive Date: 20140129
  Receipt Date: 20140320
  Transmission Date: 20141002
  Serious: Yes (Death)
  Sender: FDA-Public Use
  Company Number: FR-ROCHE-1341645

PATIENT
  Age: 63 Year
  Sex: Female

DRUGS (1)
  1. ZELBORAF [Suspect]
     Indication: NEOPLASM MALIGNANT
     Route: 048
     Dates: end: 20140101

REACTIONS (1)
  - Disease progression [Fatal]
